FAERS Safety Report 5007147-X (Version None)
Quarter: 2006Q2

REPORT INFORMATION
  Report Type: 
  Country: None (occurrence: None)
  Receive Date: 20060519
  Receipt Date: 20060509
  Transmission Date: 20061013
  Serious: Yes (Other)
  Sender: FDA-Public Use
  Company Number: US-MERCK-0605USA01797

PATIENT
  Age: 31 Year
  Sex: Female

DRUGS (4)
  1. ZOCOR [Suspect]
     Indication: BLOOD CHOLESTEROL INCREASED
     Route: 048
     Dates: start: 20050501, end: 20060508
  2. LAMICTAL [Concomitant]
     Route: 065
  3. TEGRETOL [Concomitant]
     Route: 065
  4. KEPPRA [Concomitant]
     Route: 065

REACTIONS (4)
  - CONVULSION [None]
  - DIZZINESS [None]
  - FATIGUE [None]
  - NAUSEA [None]
